FAERS Safety Report 6781553-5 (Version None)
Quarter: 2010Q2

REPORT INFORMATION
  Report Type: 
  Country: None (occurrence: None)
  Receive Date: 20100621
  Receipt Date: 20100616
  Transmission Date: 20101027
  Serious: Yes (Death)
  Sender: FDA-Public Use
  Company Number: CA-ASTRAZENECA-2010SE04966

PATIENT
  Age: 85 Year
  Sex: Female
  Weight: 72.6 kg

DRUGS (11)
  1. SEROQUEL XR [Suspect]
     Indication: CRYING
     Route: 048
     Dates: start: 20100113, end: 20100212
  2. SEROQUEL XR [Suspect]
     Indication: SUICIDAL IDEATION
     Route: 048
     Dates: start: 20100113, end: 20100212
  3. EFFEXOR [Concomitant]
  4. LACTULOSE [Concomitant]
  5. ENTROPHEN [Concomitant]
  6. FUROSEMIDE [Concomitant]
  7. LANOXIN PEACH [Concomitant]
  8. SEMIDE [Concomitant]
  9. RAMIPRIL [Concomitant]
  10. LANSOPRAZOLE [Concomitant]
  11. SPIROTON [Concomitant]

REACTIONS (7)
  - CEREBROVASCULAR ACCIDENT [None]
  - CRYING [None]
  - INSOMNIA [None]
  - NAUSEA [None]
  - SCREAMING [None]
  - THIRST [None]
  - VOMITING [None]
